FAERS Safety Report 9780585 (Version 2)
Quarter: 2014Q1

REPORT INFORMATION
  Report Type: Spontaneous
  Country: US (occurrence: US)
  Receive Date: 20131224
  Receipt Date: 20140225
  Transmission Date: 20141002
  Serious: Yes (Hospitalization, Other)
  Sender: FDA-Public Use
  Company Number: US-MERCK-1312USA008709

PATIENT
  Sex: Female

DRUGS (2)
  1. PEGINTRON [Suspect]
     Indication: HEPATITIS C
     Dosage: REDIPEN
     Dates: start: 20130201, end: 20131009
  2. REBETOL [Suspect]
     Indication: HEPATITIS C
     Dosage: UNK
     Route: 048
     Dates: start: 20130201, end: 20131009

REACTIONS (7)
  - Loss of consciousness [Unknown]
  - Hypersensitivity [Unknown]
  - Dizziness [Unknown]
  - Asthenia [Unknown]
  - Cerebrovascular accident [Unknown]
  - Speech disorder [Unknown]
  - Diarrhoea [Unknown]
